FAERS Safety Report 10243472 (Version 1)
Quarter: 2014Q2

REPORT INFORMATION
  Report Type: Spontaneous
  Country: US (occurrence: None)
  Receive Date: 20140616
  Receipt Date: 20140616
  Transmission Date: 20141212
  Serious: Yes (Hospitalization)
  Sender: FDA-Public Use
  Company Number: 2014AP002932

PATIENT
  Age: 84 Year
  Sex: Female
  Weight: 88 kg

DRUGS (7)
  1. MELOXICAM [Suspect]
     Indication: BACK PAIN
  2. TELMISARTAN (TELMISARTAN) [Concomitant]
  3. ATORVASTATIN (ATORVASTATIN) [Concomitant]
  4. LEVOTHYROXINE SODIUM (LEVOTHYROXINE SODIUM) [Concomitant]
  5. MONTELUKAST (MONTELUKAST) [Concomitant]
  6. SALMETEROL, FLUTICASONE PROPIONATE (FLUTICASONE PROPIONATE, SALEMETEROL) [Concomitant]
  7. ALBUTEROL /00139501/ (SALBUTAMOL) [Concomitant]

REACTIONS (3)
  - Thrombocytopenia [None]
  - Faeces discoloured [None]
  - Contusion [None]
